FAERS Safety Report 5569597-2 (Version None)
Quarter: 2007Q4

REPORT INFORMATION
  Report Type: 
  Country: None (occurrence: None)
  Receive Date: 20071220
  Receipt Date: 20071207
  Transmission Date: 20080405
  Serious: Yes (Other)
  Sender: FDA-Public Use
  Company Number: GB-RANBAXY-2007RR-11984

PATIENT

DRUGS (3)
  1. CITALOPRAM 20MG TABLET [Suspect]
     Dosage: 20 MG, UNK
  2. GABAPENTIN BASICS B 600MG FILMTABLETTEN [Suspect]
     Indication: NEURALGIA
  3. LYRICA [Suspect]
     Indication: NEURALGIA
     Dosage: 375 MG, UNK

REACTIONS (10)
  - AMNESIA [None]
  - ANORGASMIA [None]
  - COGNITIVE DISORDER [None]
  - CONSTIPATION [None]
  - DIARRHOEA [None]
  - DISTURBANCE IN ATTENTION [None]
  - OEDEMA [None]
  - PAIN [None]
  - POLLAKIURIA [None]
  - WEIGHT INCREASED [None]
